FAERS Safety Report 5303599-6 (Version None)
Quarter: 2007Q2

REPORT INFORMATION
  Report Type: 
  Country: None (occurrence: None)
  Receive Date: 20070420
  Receipt Date: 20070410
  Transmission Date: 20071010
  Serious: Yes (Hospitalization)
  Sender: FDA-Public Use
  Company Number: FR-PFIZER INC-2007026305

PATIENT

DRUGS (3)
  1. ZYVOX [Suspect]
     Indication: OSTEITIS
  2. ZYVOX [Suspect]
     Indication: STAPHYLOCOCCAL INFECTION
  3. CIPROFLOXACIN HCL [Suspect]

REACTIONS (2)
  - POLYARTHRITIS [None]
  - PYREXIA [None]
